FAERS Safety Report 20905127 (Version 2)
Quarter: 2022Q2

REPORT INFORMATION
  Report Type: Spontaneous
  Country: BE (occurrence: BE)
  Receive Date: 20220602
  Receipt Date: 20220613
  Transmission Date: 20220721
  Serious: Yes (Death, Hospitalization, Other)
  Sender: FDA-Public Use
  Company Number: BE-AstraZeneca-2021A709825

PATIENT
  Age: 75 Year
  Sex: Female

DRUGS (60)
  1. PACLITAXEL [Suspect]
     Active Substance: PACLITAXEL
     Indication: Endometrial cancer
     Dosage: 175 MILLIGRAM/SQ. METER, Q3W
     Route: 042
     Dates: start: 20210729, end: 20210819
  2. PACLITAXEL [Suspect]
     Active Substance: PACLITAXEL
     Dosage: 175 MILLIGRAM/SQ. METER, Q3W
     Route: 042
     Dates: start: 20210917, end: 20211007
  3. PACLITAXEL [Suspect]
     Active Substance: PACLITAXEL
     Dosage: 175 MILLIGRAM/SQ. METER, TOTAL
     Route: 042
     Dates: start: 20211007, end: 20211007
  4. PACLITAXEL [Suspect]
     Active Substance: PACLITAXEL
     Dosage: 175 MILLIGRAM/SQ. METER, TOTAL
     Route: 042
     Dates: start: 20210819, end: 20210819
  5. PACLITAXEL [Suspect]
     Active Substance: PACLITAXEL
     Dosage: 175 MILLIGRAM/SQ. METER, TOTAL
     Route: 042
     Dates: start: 20210729, end: 20210729
  6. PACLITAXEL [Suspect]
     Active Substance: PACLITAXEL
     Dosage: 175 MILLIGRAM/SQ. METER, TOTAL
     Route: 042
     Dates: start: 20210917, end: 20210917
  7. OLAPARIB [Suspect]
     Active Substance: OLAPARIB
     Indication: Endometrial cancer
     Dosage: UNK
     Route: 048
  8. DURVALUMAB [Suspect]
     Active Substance: DURVALUMAB
     Indication: Endometrial cancer
     Dosage: 1120 MILLIGRAM (TOTAL)
     Route: 042
     Dates: start: 20210729, end: 20210729
  9. DURVALUMAB [Suspect]
     Active Substance: DURVALUMAB
     Dosage: 1120 MILLIGRAM (TOTAL)
     Route: 042
     Dates: start: 20210917, end: 20210917
  10. DURVALUMAB [Suspect]
     Active Substance: DURVALUMAB
     Dosage: 1120 MILLIGRAM (TOTAL)
     Route: 042
     Dates: start: 20210819, end: 20210819
  11. DURVALUMAB [Suspect]
     Active Substance: DURVALUMAB
     Dosage: 1120 MILLIGRAM (TOTAL)
     Route: 042
     Dates: start: 20211007, end: 20211007
  12. CARBOPLATIN [Suspect]
     Active Substance: CARBOPLATIN
     Indication: Endometrial cancer
     Dosage: UNK, Q3W(AUC5 OR AUC6 EVERY THREE WEEKS)
     Route: 042
     Dates: start: 20210819, end: 20210819
  13. CARBOPLATIN [Suspect]
     Active Substance: CARBOPLATIN
     Dosage: UNK, Q3W(AUC5 OR AUC6 EVERY THREE WEEKS)
     Route: 042
     Dates: start: 20210729, end: 20210729
  14. CARBOPLATIN [Suspect]
     Active Substance: CARBOPLATIN
     Dosage: 485 MILLIGRAM, TOTAL
     Route: 042
     Dates: start: 20211007, end: 20211007
  15. CARBOPLATIN [Suspect]
     Active Substance: CARBOPLATIN
     Dosage: 409 MILLIGRAM, TOTAL
     Route: 042
     Dates: start: 20210729, end: 20210729
  16. CARBOPLATIN [Suspect]
     Active Substance: CARBOPLATIN
     Dosage: 241 MILLIGRAM, TOTAL
     Route: 042
     Dates: start: 20210917, end: 20210917
  17. CARBOPLATIN [Suspect]
     Active Substance: CARBOPLATIN
     Dosage: 389 MILLIGRAM, TOTAL
     Route: 042
     Dates: start: 20210819, end: 20210819
  18. INNOHEP [Concomitant]
     Active Substance: TINZAPARIN SODIUM
     Indication: Embolism
     Dosage: UNK, QD(7000 E, DAILY)
     Route: 058
     Dates: start: 20210724, end: 20210927
  19. INNOHEP [Concomitant]
     Active Substance: TINZAPARIN SODIUM
     Dosage: UNK, QD(10000 E QD)
     Route: 058
     Dates: start: 20211002
  20. FENTANYL [Concomitant]
     Active Substance: FENTANYL
     Indication: Abdominal pain lower
     Dosage: 12 MICROGRAM
     Route: 062
     Dates: start: 20210606
  21. BISOPROLOL [Concomitant]
     Active Substance: BISOPROLOL
     Indication: Hypertension
     Dosage: 5 MILLIGRAM, QD
     Route: 048
     Dates: start: 2011, end: 20210828
  22. BISOPROLOL [Concomitant]
     Active Substance: BISOPROLOL
     Dosage: 5 MILLIGRAM, QD,5 MG, 1X/DAY
     Route: 048
     Dates: start: 20210921
  23. BISOPROLOL [Concomitant]
     Active Substance: BISOPROLOL
     Dosage: 3 MILLIGRAM, QD
     Route: 048
     Dates: start: 20210831, end: 20210920
  24. BISOPROLOL [Concomitant]
     Active Substance: BISOPROLOL
     Dosage: 5 MILLIGRAM, QD
     Route: 048
     Dates: start: 2021, end: 20210828
  25. OMEPRAZOLE [Concomitant]
     Active Substance: OMEPRAZOLE
     Indication: Gastrooesophageal reflux disease
     Dosage: 40 MILLIGRAM, QD
     Route: 048
     Dates: start: 2019
  26. AMLODIPINE [Concomitant]
     Active Substance: AMLODIPINE BESYLATE
     Indication: Hypertension
     Dosage: 5 MILLIGRAM, QD,5 MG, 1X/DAY
     Route: 048
     Dates: start: 2011
  27. BUMETANIDE [Concomitant]
     Active Substance: BUMETANIDE
     Indication: Oedema peripheral
     Dosage: 1 MILLIGRAM, QD DAILY
     Route: 048
     Dates: start: 202105, end: 20211007
  28. DAFALGAN [Concomitant]
     Active Substance: ACETAMINOPHEN
     Indication: Back pain
     Dosage: 1 GRAM, PRN, AS NEEDED
     Route: 048
     Dates: start: 2011
  29. TRAZODONE [Concomitant]
     Active Substance: TRAZODONE HYDROCHLORIDE
     Indication: Pain
     Dosage: 100 MILLIGRAM, PRN, AS NEEDED
     Route: 048
     Dates: start: 20210605
  30. VESICARE [Concomitant]
     Active Substance: SOLIFENACIN SUCCINATE
     Indication: Prophylaxis
     Dosage: 5 MILLIGRAM, QD
     Route: 048
     Dates: start: 20210623
  31. MOVICOL [Concomitant]
     Active Substance: POLYETHYLENE GLYCOL 3350\POTASSIUM CHLORIDE\SODIUM BICARBONATE\SODIUM CHLORIDE
     Indication: Constipation
     Dosage: 1 SACHET, AS REQUIRED
     Route: 048
     Dates: start: 2019
  32. ZYRTEC [Concomitant]
     Active Substance: CETIRIZINE HYDROCHLORIDE
     Indication: Premedication
     Dosage: 10 MG DAY BEFORE AND DAY OF CHEMOTHERAPY
     Route: 048
     Dates: start: 20210728
  33. PALONOSETRON HYDROCHLORIDE [Concomitant]
     Active Substance: PALONOSETRON HYDROCHLORIDE
     Indication: Premedication
     Dosage: 250 MG ON DAY OF CHEMOTHERAPY
     Route: 042
     Dates: start: 20210729
  34. PALONOSETRON HYDROCHLORIDE [Concomitant]
     Active Substance: PALONOSETRON HYDROCHLORIDE
     Dosage: 250 UG ONE DAY OF CHEMOTHERAPY
     Route: 042
     Dates: start: 20210729
  35. IMODIUM [Concomitant]
     Active Substance: LOPERAMIDE HYDROCHLORIDE
     Indication: Diarrhoea
     Dosage: 2 MILLIGRAM, PRN,ASNECESSARY
     Route: 048
     Dates: start: 20210831, end: 20211001
  36. ALIZAPRIDE HYDROCHLORIDE [Concomitant]
     Active Substance: ALIZAPRIDE HYDROCHLORIDE
     Indication: Nausea
     Dosage: 50 MILLIGRAM, PRN, AS NEDDED
     Route: 048
     Dates: start: 20210902
  37. DIFLUCAN [Concomitant]
     Active Substance: FLUCONAZOLE
     Indication: Neutropenic sepsis
     Dosage: 200 MILLIGRAM, QD
     Route: 042
     Dates: start: 20210906, end: 20210920
  38. DIFLUCAN [Concomitant]
     Active Substance: FLUCONAZOLE
     Dosage: 200 MILLIGRAM, BID
     Route: 048
     Dates: start: 20210701, end: 20210714
  39. DEXAMETHASONE [Concomitant]
     Active Substance: DEXAMETHASONE
     Indication: Premedication
     Dosage: 20 MG DAY BEFORE AND DAY OF CHEMOTHERAPY
     Route: 048
     Dates: start: 20210728
  40. VANCOMYCIN HYDROCHLORIDE [Concomitant]
     Active Substance: VANCOMYCIN HYDROCHLORIDE
     Indication: Neutropenic sepsis
     Dosage: 500 MILLIGRAM, BID
     Route: 042
     Dates: start: 20210831, end: 20210903
  41. VANCOMYCIN HYDROCHLORIDE [Concomitant]
     Active Substance: VANCOMYCIN HYDROCHLORIDE
     Dosage: 2250 MILLIGRAM, TOTAL
     Route: 042
     Dates: start: 20210827, end: 20210827
  42. VANCOMYCIN HYDROCHLORIDE [Concomitant]
     Active Substance: VANCOMYCIN HYDROCHLORIDE
     Dosage: 200 MILLIGRAM, BID
     Route: 042
     Dates: start: 20210913, end: 20210914
  43. VANCOMYCIN HYDROCHLORIDE [Concomitant]
     Active Substance: VANCOMYCIN HYDROCHLORIDE
     Dosage: 1 GRAM, BID
     Route: 048
     Dates: start: 20210828, end: 20210830
  44. VANCOMYCIN HYDROCHLORIDE [Concomitant]
     Active Substance: VANCOMYCIN HYDROCHLORIDE
     Dosage: 150 MILLIGRAM, QD
     Route: 042
     Dates: start: 20210914, end: 20210915
  45. VANCOMYCIN HYDROCHLORIDE [Concomitant]
     Active Substance: VANCOMYCIN HYDROCHLORIDE
     Dosage: 1 GRAM, BID
     Route: 042
     Dates: start: 20210907, end: 20210908
  46. VANCOMYCIN HYDROCHLORIDE [Concomitant]
     Active Substance: VANCOMYCIN HYDROCHLORIDE
     Dosage: 2075 MILLIGRAM, TOTAL
     Route: 042
     Dates: start: 20210906, end: 20210906
  47. ALDACTONE [Concomitant]
     Active Substance: SPIRONOLACTONE
     Indication: Oedema
     Dosage: 25 MILLIGRAM, QD,DAILY
     Route: 048
     Dates: start: 20211008
  48. POTASSIUM CHLORIDE [Concomitant]
     Active Substance: POTASSIUM CHLORIDE
     Indication: Hypokalaemia
     Dosage: 20 MILLIEQUIVALENT, PRN
     Route: 042
     Dates: start: 20210927, end: 20210929
  49. POTASSIUM CHLORIDE [Concomitant]
     Active Substance: POTASSIUM CHLORIDE
     Dosage: 20 MILLIEQUIVALENT, TOTAL
     Route: 042
     Dates: start: 20211007, end: 20211007
  50. POTASSIUM CHLORIDE [Concomitant]
     Active Substance: POTASSIUM CHLORIDE
     Dosage: 20 MILLIEQUIVALENT, PRN
     Route: 042
     Dates: start: 20210903, end: 20210911
  51. POTASSIUM CHLORIDE [Concomitant]
     Active Substance: POTASSIUM CHLORIDE
     Dosage: 20 MILLIEQUIVALENT, QD
     Route: 042
     Dates: start: 20210829, end: 20210831
  52. POTASSIUM CHLORIDE [Concomitant]
     Active Substance: POTASSIUM CHLORIDE
     Dosage: 40 MILLIEQUIVALENT, PRN
     Route: 042
     Dates: start: 20210904, end: 20210912
  53. POTASSIUM CHLORIDE [Concomitant]
     Active Substance: POTASSIUM CHLORIDE
     Dosage: 40 MILLIEQUIVALENT, QD
     Route: 042
     Dates: start: 20210827, end: 20210829
  54. POTASSIUM CHLORIDE [Concomitant]
     Active Substance: POTASSIUM CHLORIDE
     Dosage: 40 MILLIEQUIVALENT, QD
     Route: 042
     Dates: start: 20210928, end: 20210929
  55. MAGNESIUM SULFATE [Concomitant]
     Active Substance: MAGNESIUM SULFATE
     Indication: Hypomagnesaemia
     Dosage: 3 GRAM, TOTAL
     Route: 042
     Dates: start: 20211007, end: 20211007
  56. MAGNESIUM SULFATE [Concomitant]
     Active Substance: MAGNESIUM SULFATE
     Dosage: 3 GRAM, PRN, AS NEEDED
     Route: 042
     Dates: start: 20210827, end: 20210910
  57. NEULASTA [Concomitant]
     Active Substance: PEGFILGRASTIM
     Indication: Neutropenia
     Dosage: 6 MILLIGRAM, Q3MONTHS
     Route: 058
     Dates: start: 20211008
  58. NEULASTA [Concomitant]
     Active Substance: PEGFILGRASTIM
     Dosage: 6 MILLIGRAM, TOTAL
     Route: 058
     Dates: start: 20210827, end: 20210827
  59. AUGMENTIN [Concomitant]
     Active Substance: AMOXICILLIN\CLAVULANATE POTASSIUM
     Indication: Neutropenic sepsis
     Dosage: 875 MILLIGRAM, Q8H
     Route: 048
     Dates: start: 20211002, end: 20211005
  60. AUGMENTIN [Concomitant]
     Active Substance: AMOXICILLIN\CLAVULANATE POTASSIUM
     Dosage: 875 MILLIGRAM, Q8H
     Route: 048
     Dates: start: 20210929, end: 20211001

REACTIONS (9)
  - General physical health deterioration [Fatal]
  - Neoplasm progression [Fatal]
  - Neutropenic sepsis [Recovered/Resolved]
  - Urosepsis [Not Recovered/Not Resolved]
  - White blood cell count decreased [Unknown]
  - Anaemia [Unknown]
  - Blood potassium decreased [Unknown]
  - Gamma-glutamyltransferase increased [Unknown]
  - Staphylococcus test positive [Unknown]

NARRATIVE: CASE EVENT DATE: 20210827
